FAERS Safety Report 25296441 (Version 1)
Quarter: 2025Q2

REPORT INFORMATION
  Report Type: Spontaneous
  Country: US (occurrence: US)
  Receive Date: 20250511
  Receipt Date: 20250511
  Transmission Date: 20250716
  Serious: No
  Sender: SANOFI AVENTIS
  Company Number: US-SA-2025SA133119

PATIENT
  Age: 53 Year
  Sex: Female

DRUGS (13)
  1. DUPIXENT [Suspect]
     Active Substance: DUPILUMAB
     Indication: Asthma
     Route: 058
     Dates: start: 20240606
  2. XOLAIR [Concomitant]
     Active Substance: OMALIZUMAB
  3. METRONIDAZOLE [Concomitant]
     Active Substance: METRONIDAZOLE
  4. ADVAIR HFA [Concomitant]
     Active Substance: FLUTICASONE PROPIONATE\SALMETEROL XINAFOATE
  5. TYLENOL [Concomitant]
     Active Substance: ACETAMINOPHEN
  6. PREDNISONE [Concomitant]
     Active Substance: PREDNISONE
  7. XANAX [Concomitant]
     Active Substance: ALPRAZOLAM
  8. FLAXSEED [Concomitant]
     Active Substance: FLAX SEED
  9. VITAMIN B COMPLEX [Concomitant]
     Active Substance: CYANOCOBALAMIN\DEXPANTHENOL\NIACINAMIDE\PYRIDOXINE HYDROCHLORIDE\RIBOFLAVIN 5^-PHOSPHATE SODIUM\THIA
  10. PROBIOTICS NOS [Concomitant]
     Active Substance: PROBIOTICS NOS
  11. AMLODIPINE [Concomitant]
     Active Substance: AMLODIPINE BESYLATE
  12. CLINDAMYCIN [Concomitant]
     Active Substance: CLINDAMYCIN
  13. VITAMIN D NOS [Concomitant]
     Active Substance: CHOLECALCIFEROL\ERGOCALCIFEROL

REACTIONS (2)
  - Eye disorder [Unknown]
  - Gastritis [Unknown]

NARRATIVE: CASE EVENT DATE: 20250507
